FAERS Safety Report 19174619 (Version 1)
Quarter: 2021Q2

REPORT INFORMATION
  Report Type: Spontaneous
  Country: US (occurrence: US)
  Receive Date: 20210423
  Receipt Date: 20210423
  Transmission Date: 20210717
  Serious: No
  Sender: FDA-Public Use
  Company Number: US-ABBVIE-21K-163-3825039-00

PATIENT
  Sex: Female

DRUGS (2)
  1. ORILISSA [Suspect]
     Active Substance: ELAGOLIX SODIUM
     Indication: OVARIAN CYST
     Route: 048
     Dates: start: 2020
  2. PROGESTERONE. [Concomitant]
     Active Substance: PROGESTERONE
     Indication: CONTRACEPTION

REACTIONS (1)
  - Off label use [Not Recovered/Not Resolved]
